FAERS Safety Report 6341923-6 (Version None)
Quarter: 2009Q3

REPORT INFORMATION
  Report Type: 
  Country: None (occurrence: None)
  Receive Date: 20090904
  Receipt Date: 20090827
  Transmission Date: 20100115
  Serious: Yes (Hospitalization, Other)
  Sender: FDA-Public Use
  Company Number: PHHO2007DE17711

PATIENT
  Sex: Male
  Weight: 118 kg

DRUGS (2)
  1. RAD 666 RAD+TAB [Suspect]
     Indication: RENAL TRANSPLANT
     Dosage: 0.75 MG, BID
     Route: 048
     Dates: start: 20070619
  2. RAD 666 RAD+TAB [Suspect]
     Dosage: 1.25 MG, BID
     Route: 048
     Dates: end: 20080223

REACTIONS (3)
  - ALBUMINURIA [None]
  - CALCULUS BLADDER [None]
  - URINARY RETENTION [None]
